FAERS Safety Report 9290642 (Version 2)
Quarter: 2013Q3

REPORT INFORMATION
  Report Type: Report from Study
  Country: BR (occurrence: BR)
  Receive Date: 20130515
  Receipt Date: 20130813
  Transmission Date: 20140515
  Serious: Yes (Death, Hospitalization)
  Sender: FDA-Public Use
  Company Number: BR-ROCHE-1224153

PATIENT
  Age: 71 Year
  Sex: Female

DRUGS (3)
  1. XOLAIR [Suspect]
     Indication: ASTHMA
     Route: 065
  2. FORASEQ [Concomitant]
  3. SPIRIVA [Concomitant]

REACTIONS (7)
  - Death [Fatal]
  - Lung infection [Recovering/Resolving]
  - Cardio-respiratory arrest [Recovering/Resolving]
  - Hypertension [Recovering/Resolving]
  - Contusion [Recovering/Resolving]
  - Abasia [Recovering/Resolving]
  - Weight increased [Unknown]
